FAERS Safety Report 23160641 (Version 2)
Quarter: 2023Q4

REPORT INFORMATION
  Report Type: Report from Study
  Country: US (occurrence: US)
  Receive Date: 20231108
  Receipt Date: 20231122
  Transmission Date: 20240109
  Serious: No
  Sender: FDA-Public Use
  Company Number: US-ALXN-A202313619

PATIENT
  Age: 50 Year
  Sex: Female

DRUGS (1)
  1. STRENSIQ [Suspect]
     Active Substance: ASFOTASE ALFA
     Indication: Hypophosphatasia
     Dosage: 112 MILLIGRAM, TIW
     Route: 058
     Dates: start: 20230918

REACTIONS (9)
  - Arthralgia [Unknown]
  - Bone pain [Unknown]
  - Palpitations [Unknown]
  - Meniscus injury [Not Recovered/Not Resolved]
  - Malaise [Unknown]
  - Injection site pain [Unknown]
  - Fatigue [Recovering/Resolving]
  - Muscular weakness [Recovering/Resolving]
  - Brain fog [Recovering/Resolving]

NARRATIVE: CASE EVENT DATE: 20231019
